FAERS Safety Report 16451069 (Version 1)
Quarter: 2019Q2

REPORT INFORMATION
  Report Type: Spontaneous
  Country: ES (occurrence: ES)
  Receive Date: 20190619
  Receipt Date: 20190619
  Transmission Date: 20190711
  Serious: Yes (Other)
  Sender: FDA-Public Use
  Company Number: ES-AMGEN-ESPSP2019095030

PATIENT
  Age: 74 Year
  Sex: Female

DRUGS (10)
  1. SALBUTAMOL [Concomitant]
     Active Substance: ALBUTEROL
     Indication: ASTHMA
     Dosage: 100 MICROGRAM, Q6H
     Route: 055
     Dates: start: 20111109
  2. PROLIA [Suspect]
     Active Substance: DENOSUMAB
     Indication: OSTEOPOROSIS
     Dosage: 60 MILLIGRAM, Q6MO
     Route: 058
     Dates: start: 20140521
  3. PREDNISONE. [Concomitant]
     Active Substance: PREDNISONE
     Indication: POLYCHONDRITIS
     Dosage: 5 MILLIGRAM, QD
     Route: 048
     Dates: start: 20181128
  4. FERROGLYCINE SULFATE [Concomitant]
     Active Substance: FERROGLYCINE SULFATE
     Dosage: 567 MILLIGRAM, QD
     Route: 048
     Dates: start: 20180505
  5. METHOTREXATE. [Concomitant]
     Active Substance: METHOTREXATE
     Indication: POLYCHONDRITIS
     Dosage: 20 MILLIGRAM, QWK
     Route: 058
     Dates: start: 20190307
  6. OSVICAL D [Concomitant]
     Indication: OSTEOPOROSIS
     Dosage: 4.5 GRAM, QD
     Route: 048
     Dates: start: 20140521
  7. METAMIZOL [Concomitant]
     Active Substance: METAMIZOLE SODIUM
     Dosage: 575 MILLIGRAM, Q8H
     Route: 048
     Dates: start: 20180313
  8. BISOPROLOL [Concomitant]
     Active Substance: BISOPROLOL
     Dosage: 2.5 MILLIGRAM, QD
     Route: 048
     Dates: start: 20180407
  9. FORMODUAL [Concomitant]
     Active Substance: BECLOMETHASONE DIPROPIONATE\FORMOTEROL FUMARATE
     Dosage: 2 DOSAGE FORM, Q12H
     Route: 055
     Dates: start: 20180505
  10. FOLIC ACID. [Concomitant]
     Active Substance: FOLIC ACID
     Dosage: 5 MILLIGRAM, QWK
     Route: 048
     Dates: start: 20180525

REACTIONS (1)
  - Vasculitis [Unknown]

NARRATIVE: CASE EVENT DATE: 20180606
